FAERS Safety Report 12201062 (Version 1)
Quarter: 2016Q1

REPORT INFORMATION
  Report Type: Spontaneous
  Country: US (occurrence: US)
  Receive Date: 20160322
  Receipt Date: 20160322
  Transmission Date: 20160526
  Serious: No
  Sender: FDA-Public Use
  Company Number: US-SA-2015SA073481

PATIENT
  Age: 81 Year
  Sex: Female

DRUGS (1)
  1. NASACORT ALLERGY 24HR [Suspect]
     Active Substance: TRIAMCINOLONE ACETONIDE
     Indication: SINUS DISORDER
     Dosage: STARTED 2 MONTHS AGO?USES ONE SPRAY IN EACH NOSTRIL TWO OR THREE TIMES BUT IT IS WHEN SHE HAS SINUS
     Route: 045

REACTIONS (1)
  - Drug effect incomplete [Unknown]
